FAERS Safety Report 19584422 (Version 2)
Quarter: 2021Q3

REPORT INFORMATION
  Report Type: Report from Study
  Country: DE (occurrence: DE)
  Receive Date: 20210720
  Receipt Date: 20210805
  Transmission Date: 20211014
  Serious: Yes (Death, Hospitalization, Other)
  Sender: FDA-Public Use
  Company Number: DE-JNJFOC-20210733380

PATIENT
  Age: 60 Year
  Sex: Female

DRUGS (1)
  1. VENTAVIS [Suspect]
     Active Substance: ILOPROST
     Indication: PULMONARY ARTERIAL HYPERTENSION
     Dosage: INHALATION; V 20U/ML  5X DAILY
     Route: 055
     Dates: start: 20201103, end: 20210627

REACTIONS (4)
  - Musculoskeletal procedural complication [Unknown]
  - Inappropriate schedule of product administration [Unknown]
  - Fall [Fatal]
  - Traumatic fracture [Fatal]

NARRATIVE: CASE EVENT DATE: 20210627
